FAERS Safety Report 20978653 (Version 1)
Quarter: 2022Q2

REPORT INFORMATION
  Report Type: Spontaneous
  Country: US (occurrence: US)
  Receive Date: 20220618
  Receipt Date: 20220618
  Transmission Date: 20220721
  Serious: No
  Sender: FDA-Public Use
  Company Number: US-SANOFI-01144426

PATIENT
  Sex: Female

DRUGS (2)
  1. ALLEGRA ALLERGY [Suspect]
     Active Substance: FEXOFENADINE HYDROCHLORIDE
     Dosage: UNK
  2. XYZAL [Concomitant]
     Active Substance: LEVOCETIRIZINE DIHYDROCHLORIDE
     Indication: Urticaria
     Dosage: UNK

REACTIONS (1)
  - Urticaria [Recovered/Resolved]
